FAERS Safety Report 16367702 (Version 1)
Quarter: 2019Q2

REPORT INFORMATION
  Report Type: Report from Study
  Country: CO (occurrence: CO)
  Receive Date: 20190529
  Receipt Date: 20190529
  Transmission Date: 20190711
  Serious: No
  Sender: FDA-Public Use
  Company Number: CO-JNJFOC-20190525881

PATIENT
  Age: 35 Year

DRUGS (1)
  1. STELARA [Suspect]
     Active Substance: USTEKINUMAB
     Indication: PSORIATIC ARTHROPATHY
     Route: 058
     Dates: start: 20130218

REACTIONS (7)
  - Headache [Unknown]
  - Psoriasis [Unknown]
  - Arthralgia [Unknown]
  - Hepatic enzyme increased [Unknown]
  - Product dose omission [Unknown]
  - Photophobia [Unknown]
  - Eye disorder [Unknown]

NARRATIVE: CASE EVENT DATE: 20161230
